FAERS Safety Report 7409916-5 (Version None)
Quarter: 2011Q2

REPORT INFORMATION
  Report Type: 
  Country: None (occurrence: None)
  Receive Date: 20110412
  Receipt Date: 20110406
  Transmission Date: 20111010
  Serious: Yes (Hospitalization)
  Sender: FDA-Public Use
  Company Number: US-ELI_LILLY_AND_COMPANY-US201104001634

PATIENT
  Sex: Male

DRUGS (2)
  1. ACE INHIBITORS [Concomitant]
  2. BYETTA [Suspect]
     Route: 058

REACTIONS (4)
  - DRUG INTERACTION [None]
  - ABDOMINAL PAIN [None]
  - PANCREATITIS [None]
  - CARDIAC DISORDER [None]
